FAERS Safety Report 19557348 (Version 2)
Quarter: 2021Q3

REPORT INFORMATION
  Report Type: Not Available
  Country: DE (occurrence: None)
  Receive Date: 20210714
  Receipt Date: 20210716
  Transmission Date: 20211014
  Serious: Yes (Life-Threatening, Hospitalization, Other)
  Sender: FDA-Public Use
  Company Number: US-AKORN-169510

PATIENT
  Age: 30 Year
  Sex: Male

DRUGS (1)
  1. VALPROIC ACID ORAL SOLUTION [Suspect]
     Active Substance: VALPROIC ACID

REACTIONS (1)
  - Deep vein thrombosis [None]
